FAERS Safety Report 13933390 (Version 1)
Quarter: 2017Q3

REPORT INFORMATION
  Report Type: Spontaneous
  Country: MY (occurrence: MY)
  Receive Date: 20170904
  Receipt Date: 20170904
  Transmission Date: 20171127
  Serious: Yes (Other)
  Sender: FDA-Public Use
  Company Number: PHHY2017MY127491

PATIENT

DRUGS (1)
  1. EXJADE [Suspect]
     Active Substance: DEFERASIROX
     Indication: IRON OVERLOAD
     Route: 065
     Dates: start: 201208, end: 201601

REACTIONS (3)
  - Therapeutic response decreased [Unknown]
  - Alanine aminotransferase increased [Unknown]
  - Renal impairment [Unknown]

NARRATIVE: CASE EVENT DATE: 201209
